FAERS Safety Report 19181353 (Version 2)
Quarter: 2021Q2

REPORT INFORMATION
  Report Type: Spontaneous
  Country: RS (occurrence: RS)
  Receive Date: 20210426
  Receipt Date: 20210603
  Transmission Date: 20210717
  Serious: Yes (Hospitalization)
  Sender: FDA-Public Use
  Company Number: RS-ALLERGAN-2116192US

PATIENT
  Sex: Male
  Weight: 77 kg

DRUGS (3)
  1. CARIPRAZINE HCL ? BP [Suspect]
     Active Substance: CARIPRAZINE HYDROCHLORIDE
     Indication: SCHIZOAFFECTIVE DISORDER
     Dosage: 1.5 MG, QD 1+0+0
     Route: 048
     Dates: start: 20210302, end: 20210311
  2. EFTIL SANOFI AVENTIS [Concomitant]
     Indication: IMPULSIVE BEHAVIOUR
     Dosage: 500 MG, BID 1+0+1
     Route: 048
     Dates: start: 202004, end: 202104
  3. RIVOTRIL REMEDICA [Concomitant]
     Indication: ANXIETY
     Dosage: 2 MG 3X1
     Route: 048
     Dates: start: 20210303

REACTIONS (4)
  - Blood chloride decreased [Recovered/Resolved]
  - Blood sodium decreased [Recovered/Resolved]
  - Condition aggravated [Recovered/Resolved]
  - Product use in unapproved indication [Unknown]

NARRATIVE: CASE EVENT DATE: 20210302
